FAERS Safety Report 8043394-0 (Version None)
Quarter: 2012Q1

REPORT INFORMATION
  Report Type: 
  Country: None (occurrence: None)
  Receive Date: 20120112
  Receipt Date: 20120109
  Transmission Date: 20120608
  Serious: Yes (Death, Hospitalization)
  Sender: FDA-Public Use
  Company Number: US-CELGENEUS-163-AB007-11123036

PATIENT
  Sex: Female
  Weight: 104 kg

DRUGS (41)
  1. GEMCITABINE [Suspect]
     Dosage: 800 MILLIGRAM/SQ. METER
     Route: 041
     Dates: start: 20111215, end: 20111222
  2. SPIRONOLACTONE [Concomitant]
     Dosage: 50 MILLIGRAM
     Route: 065
  3. CEFTRIAXONE [Concomitant]
     Route: 065
     Dates: start: 20110101
  4. SODIUM CHLORIDE [Concomitant]
     Dosage: 1000 MILLILITER
     Route: 041
     Dates: start: 20111220, end: 20111220
  5. PANTOPRAZOLE [Concomitant]
     Dosage: 40 MILLIGRAM
     Route: 041
  6. GABAPENTIN [Concomitant]
     Dosage: 800 MILLIGRAM
     Route: 065
  7. INSULIN [Concomitant]
     Route: 065
     Dates: start: 20110101
  8. HUMALOG [Concomitant]
     Dosage: 10 UNITS
     Route: 058
     Dates: start: 20111220, end: 20111220
  9. NOREPINEPHRINE BITARTRATE [Concomitant]
     Dosage: 16 MILLIGRAM
     Route: 041
  10. LIDOCAINE [Concomitant]
     Dosage: 1 PERCENT
     Route: 065
  11. ALTEPLASE [Concomitant]
     Dosage: 2 MILLIGRAM
     Route: 065
  12. OMEPRAZOLE [Concomitant]
     Dosage: 20 MILLIGRAM
     Route: 065
  13. KAYEXALATE [Concomitant]
     Dosage: 30 GRAM
     Route: 054
     Dates: start: 20111220, end: 20111220
  14. DEXTROSE [Concomitant]
     Dosage: 25 GRAM
     Route: 041
     Dates: start: 20111220, end: 20111220
  15. SODIUM BICARBONATE [Concomitant]
     Dosage: 50 MILLIEQUIVALENTS
     Route: 041
     Dates: start: 20111220, end: 20111220
  16. FLUID [Concomitant]
     Route: 041
  17. GEMCITABINE [Suspect]
     Indication: ADENOCARCINOMA PANCREAS
     Dosage: 1000 MILLIGRAM/SQ. METER
     Route: 041
     Dates: start: 20111110
  18. LEVOTHYROXINE SODIUM [Concomitant]
     Dosage: 125 MICROGRAM
     Route: 048
  19. KEFLEX [Concomitant]
     Indication: CELLULITIS
     Route: 065
  20. NYSTATIN [Concomitant]
     Dosage: 5 MILLILITER
     Route: 048
  21. HYDROMORPHONE HCL [Concomitant]
     Dosage: .2 MILLIGRAM
     Route: 041
  22. COSYNTROPIN [Concomitant]
     Dosage: .25 MILLIGRAM
     Route: 041
  23. CIPROFLOXACIN [Concomitant]
     Route: 065
  24. ABRAXANE [Suspect]
     Indication: ADENOCARCINOMA PANCREAS
     Dosage: 125 MILLIGRAM/SQ. METER
     Route: 041
     Dates: start: 20111110
  25. LOVENOX [Concomitant]
     Dosage: .9 MILLIGRAM
     Route: 058
  26. FENTANYL [Concomitant]
     Dosage: 75 MICROGRAM
     Route: 061
  27. ABRAXANE [Suspect]
     Dosage: 100 MILLIGRAM/SQ. METER
     Route: 041
     Dates: start: 20111215, end: 20111222
  28. LASIX [Concomitant]
     Route: 065
  29. GLIPIZIDE [Concomitant]
     Dosage: 10 MILLIGRAM
     Route: 048
  30. BICARBONATE [Concomitant]
     Route: 065
     Dates: start: 20110101
  31. FUROSEMIDE [Concomitant]
     Dosage: 40 MILLIGRAM
     Route: 048
  32. MAGNESIUM OXIDE [Concomitant]
     Dosage: 400 MILLIGRAM
     Route: 048
  33. VANCOMYCIN [Concomitant]
     Indication: CELLULITIS
     Dosage: 1 GRAM
     Route: 041
     Dates: start: 20111220, end: 20111220
  34. PLATELETS [Concomitant]
     Indication: THROMBOCYTOPENIA
     Dosage: 4 AND 6 UNITS
     Route: 041
     Dates: start: 20110101
  35. METRONIDAZOLE [Concomitant]
     Dosage: 500 MILLIGRAM
     Route: 041
  36. CEPHALEXIN [Concomitant]
     Dosage: 500 MILLIGRAM
     Route: 065
  37. WHOLE BLOOD [Concomitant]
     Dosage: 2 UNITS
     Route: 041
     Dates: start: 20110101, end: 20110101
  38. FLUCONAZOLE [Concomitant]
     Dosage: 100 MILLIGRAM
     Route: 041
  39. DEXAMETHASONE TAB [Concomitant]
     Dosage: 4 MILLIGRAM
     Route: 041
  40. CEFEPIME [Concomitant]
     Dosage: 4 MILLIGRAM
     Route: 041
  41. HEPARIN [Concomitant]
     Dosage: 100 MILLILITER
     Route: 041

REACTIONS (2)
  - NEUTROPENIA [None]
  - NEUTROPENIC INFECTION [None]
